FAERS Safety Report 14547637 (Version 1)
Quarter: 2018Q1

REPORT INFORMATION
  Report Type: Spontaneous
  Country: US (occurrence: US)
  Receive Date: 20180219
  Receipt Date: 20180219
  Transmission Date: 20180509
  Serious: No
  Sender: FDA-Public Use
  Company Number: US-IPSEN BIOPHARMACEUTICALS, INC.-2017-01632

PATIENT
  Sex: Female

DRUGS (3)
  1. DYSPORT [Suspect]
     Active Substance: ABOBOTULINUMTOXINA
     Dosage: 76 OR 78 UNITS
     Route: 065
     Dates: start: 20170223, end: 20170223
  2. ALEVE [Concomitant]
     Active Substance: NAPROXEN SODIUM
  3. DYSPORT [Suspect]
     Active Substance: ABOBOTULINUMTOXINA
     Indication: SKIN WRINKLING
     Dosage: 50 UNITS
     Route: 065
     Dates: start: 201609, end: 201609

REACTIONS (1)
  - Drug ineffective [Unknown]
